FAERS Safety Report 6209953-2 (Version None)
Quarter: 2009Q2

REPORT INFORMATION
  Report Type: 
  Country: None (occurrence: None)
  Receive Date: 20090601
  Receipt Date: 20080722
  Transmission Date: 20091009
  Serious: Yes (Death)
  Sender: FDA-Public Use
  Company Number: FR-PFIZER INC-2008066228

PATIENT

DRUGS (4)
  1. ZYVOXID [Suspect]
     Indication: STAPHYLOCOCCAL SEPSIS
  2. SULFAMETHOXAZOLE AND TRIMETHOPRIM [Concomitant]
  3. VANCOMYCIN HCL [Concomitant]
  4. GENTAMICIN [Concomitant]

REACTIONS (3)
  - DEATH [None]
  - DRUG INEFFECTIVE [None]
  - INTENTIONAL DRUG MISUSE [None]
